FAERS Safety Report 17647864 (Version 1)
Quarter: 2020Q2

REPORT INFORMATION
  Report Type: Spontaneous
  Country: JP (occurrence: JP)
  Receive Date: 20200408
  Receipt Date: 20200408
  Transmission Date: 20200713
  Serious: Yes (Other)
  Sender: FDA-Public Use
  Company Number: NVSC2020JP095392

PATIENT
  Age: 50 Year
  Sex: Female

DRUGS (1)
  1. METHYLPREDNISOLONE. [Suspect]
     Active Substance: METHYLPREDNISOLONE
     Indication: CONUS MEDULLARIS SYNDROME
     Dosage: HIGH DOSE
     Route: 065

REACTIONS (2)
  - Product use in unapproved indication [Unknown]
  - Myelitis [Unknown]
